FAERS Safety Report 24037462 (Version 2)
Quarter: 2024Q3

REPORT INFORMATION
  Report Type: Spontaneous
  Country: BR (occurrence: BR)
  Receive Date: 20240702
  Receipt Date: 20240906
  Transmission Date: 20241016
  Serious: Yes (Other)
  Sender: CHEPLAPHARM
  Company Number: BR-CHEPLA-2024006420

PATIENT
  Sex: Female
  Weight: 95 kg

DRUGS (14)
  1. CLONAZEPAM [Suspect]
     Active Substance: CLONAZEPAM
     Indication: Pain
     Dates: start: 2019
  2. CLONAZEPAM [Suspect]
     Active Substance: CLONAZEPAM
     Indication: Fibromyalgia
     Dates: start: 2019
  3. PREGABALIN [Concomitant]
     Active Substance: PREGABALIN
     Dosage: FREQUENCY: CONTINUOUSLY
  4. SERTRALINE [Concomitant]
     Active Substance: SERTRALINE HYDROCHLORIDE
     Dosage: FREQUENCY: CONTINUOUSLY
  5. BACLOFEN [Concomitant]
     Active Substance: BACLOFEN
     Indication: Pain
  6. LOSARTAN [Concomitant]
     Active Substance: LOSARTAN\LOSARTAN POTASSIUM
     Dosage: ONGOING
  7. AMLODIPINE [Concomitant]
     Active Substance: AMLODIPINE BESYLATE
     Indication: Blood pressure measurement
     Dosage: ONGOING
  8. HYDROCHLOROTHIAZIDE [Concomitant]
     Active Substance: HYDROCHLOROTHIAZIDE
     Indication: Blood pressure measurement
     Dosage: ONGOING
  9. COLLAGEN [Concomitant]
     Active Substance: COLLAGEN
     Indication: Product used for unknown indication
     Dosage: ONGOING
  10. MDK Vitamins [Concomitant]
     Indication: Product used for unknown indication
     Dosage: ONGOING
  11. ACETAMINOPHEN\CODEINE PHOSPHATE [Concomitant]
     Active Substance: ACETAMINOPHEN\CODEINE PHOSPHATE
     Indication: Insomnia
     Dosage: ONGOING
  12. CODEINE [Concomitant]
     Active Substance: CODEINE
     Indication: Insomnia
     Dosage: ONGOING
  13. MORPHINE [Concomitant]
     Active Substance: MORPHINE
     Indication: Insomnia
     Dosage: ONGOING
  14. QUETIAPINE [Concomitant]
     Active Substance: QUETIAPINE
     Indication: Insomnia

REACTIONS (6)
  - Spinal osteoarthritis [Not Recovered/Not Resolved]
  - Pneumonia [Not Recovered/Not Resolved]
  - Therapeutic response unexpected [Recovered/Resolved]
  - Product use in unapproved indication [Not Recovered/Not Resolved]
  - Pain [Not Recovered/Not Resolved]
  - Insomnia [Unknown]

NARRATIVE: CASE EVENT DATE: 20190101
